FAERS Safety Report 7991283-X (Version None)
Quarter: 2011Q4

REPORT INFORMATION
  Report Type: 
  Country: None (occurrence: None)
  Receive Date: 20111215
  Receipt Date: 20111209
  Transmission Date: 20120403
  Serious: Yes (Hospitalization, Other)
  Sender: FDA-Public Use
  Company Number: 2009SP023519

PATIENT
  Age: 29 Year
  Sex: Female
  Weight: 72.5755 kg

DRUGS (2)
  1. NUVARING [Suspect]
     Indication: CONTRACEPTION
     Dates: start: 20080323
  2. NUVARING [Suspect]
     Indication: CONTRACEPTION
     Dates: start: 20081101, end: 20081201

REACTIONS (17)
  - INCORRECT DRUG ADMINISTRATION DURATION [None]
  - PREGNANCY [None]
  - EXPOSURE TO COMMUNICABLE DISEASE [None]
  - DEEP VEIN THROMBOSIS [None]
  - VULVOVAGINAL CANDIDIASIS [None]
  - BLOOD PRESSURE INCREASED [None]
  - DYSPNOEA [None]
  - PULMONARY EMBOLISM [None]
  - ABSCESS NECK [None]
  - HYPOKALAEMIA [None]
  - PELVIC PAIN [None]
  - FIBRIN D DIMER INCREASED [None]
  - ABDOMINAL PAIN UPPER [None]
  - FLANK PAIN [None]
  - HAEMORRHAGE [None]
  - MATERNAL EXPOSURE BEFORE PREGNANCY [None]
  - ABORTION INDUCED [None]
